FAERS Safety Report 22090393 (Version 1)
Quarter: 2023Q1

REPORT INFORMATION
  Report Type: Report from Study
  Country: US (occurrence: US)
  Receive Date: 20230313
  Receipt Date: 20230313
  Transmission Date: 20230418
  Serious: Yes (Other)
  Sender: FDA-Public Use
  Company Number: US-GILEAD-2023-0620121

PATIENT
  Age: 62 Year
  Sex: Male

DRUGS (1)
  1. SACITUZUMAB GOVITECAN-HZIY [Suspect]
     Active Substance: SACITUZUMAB GOVITECAN-HZIY
     Indication: Transitional cell carcinoma metastatic
     Dosage: UNK
     Route: 065

REACTIONS (7)
  - Disease progression [Unknown]
  - Muscle atrophy [Unknown]
  - Gastrointestinal disorder [Unknown]
  - Fatigue [Unknown]
  - Alopecia [Unknown]
  - Asthenia [Unknown]
  - Decreased appetite [Unknown]
